FAERS Safety Report 22889092 (Version 4)
Quarter: 2023Q4

REPORT INFORMATION
  Report Type: Spontaneous
  Country: US (occurrence: US)
  Receive Date: 20230831
  Receipt Date: 20231004
  Transmission Date: 20240109
  Serious: Yes (Other)
  Sender: FDA-Public Use
  Company Number: US-PFIZER INC-202300286002

PATIENT
  Age: 74 Year
  Sex: Female
  Weight: 43.09 kg

DRUGS (7)
  1. ESTRADIOL [Suspect]
     Active Substance: ESTRADIOL
  2. MELOXICAM [Concomitant]
     Active Substance: MELOXICAM
     Indication: Back pain
     Dosage: 15 MG, 1X/DAY
     Route: 048
  3. MELOXICAM [Concomitant]
     Active Substance: MELOXICAM
     Indication: Neck pain
  4. BACLOFEN [Concomitant]
     Active Substance: BACLOFEN
     Indication: Muscle relaxant therapy
     Dosage: 10 MG
  5. RIZATRIPTAN [Concomitant]
     Active Substance: RIZATRIPTAN
     Indication: Migraine
     Dosage: 10 MG
  6. ONDANSETRON [Concomitant]
     Active Substance: ONDANSETRON
     Indication: Nausea
     Dosage: UNK
  7. CLONAZEPAM [Concomitant]
     Active Substance: CLONAZEPAM
     Indication: Anxiety
     Dosage: 0.5 MG

REACTIONS (8)
  - Cerebrovascular accident [Unknown]
  - Basal cell carcinoma [Unknown]
  - Bacterial vulvovaginitis [Not Recovered/Not Resolved]
  - Weight decreased [Unknown]
  - Vaginal infection [Not Recovered/Not Resolved]
  - Haemorrhoids [Unknown]
  - Vaginal discharge [Not Recovered/Not Resolved]
  - Blister [Unknown]

NARRATIVE: CASE EVENT DATE: 20230401
